FAERS Safety Report 7542483-4 (Version None)
Quarter: 2011Q2

REPORT INFORMATION
  Report Type: 
  Country: None (occurrence: None)
  Receive Date: 20110524
  Receipt Date: 20110214
  Transmission Date: 20111010
  Serious: No
  Sender: FDA-Public Use
  Company Number: 025797

PATIENT
  Sex: Male

DRUGS (1)
  1. CIMZIA [Suspect]
     Indication: CROHN'S DISEASE
     Dosage: SUBCUTANEOUS
     Route: 058
     Dates: start: 20101110

REACTIONS (7)
  - VOMITING [None]
  - WEIGHT DECREASED [None]
  - ABDOMINAL PAIN [None]
  - ARTHRITIS [None]
  - UPPER RESPIRATORY TRACT INFECTION [None]
  - NAUSEA [None]
  - HAEMATOCHEZIA [None]
